FAERS Safety Report 13330038 (Version 1)
Quarter: 2017Q1

REPORT INFORMATION
  Report Type: Spontaneous
  Country: US (occurrence: US)
  Receive Date: 20170313
  Receipt Date: 20170313
  Transmission Date: 20170428
  Serious: No
  Sender: FDA-Public Use
  Company Number: US-PFIZER INC-2017100028

PATIENT
  Sex: Female

DRUGS (1)
  1. XELJANZ XR [Suspect]
     Active Substance: TOFACITINIB CITRATE
     Dosage: 11 MG, DAILY

REACTIONS (11)
  - Musculoskeletal stiffness [Unknown]
  - Pain in extremity [Unknown]
  - Pain [Unknown]
  - Pruritus [Unknown]
  - Joint range of motion decreased [Unknown]
  - Herpes zoster [Unknown]
  - Condition aggravated [Unknown]
  - Rash [Recovering/Resolving]
  - Burning sensation [Unknown]
  - Arthralgia [Unknown]
  - Joint warmth [Unknown]
